FAERS Safety Report 21342442 (Version 1)
Quarter: 2022Q3

REPORT INFORMATION
  Report Type: Spontaneous
  Country: JP (occurrence: JP)
  Receive Date: 20220916
  Receipt Date: 20220916
  Transmission Date: 20221027
  Serious: Yes (Life-Threatening, Hospitalization, Other)
  Sender: FDA-Public Use
  Company Number: JP-GILEAD-2022-0597581

PATIENT
  Age: 39 Year
  Sex: Male

DRUGS (2)
  1. VEKLURY [Suspect]
     Active Substance: REMDESIVIR
     Indication: COVID-19
     Dosage: UNK
     Route: 065
  2. BARICITINIB [Concomitant]
     Active Substance: BARICITINIB
     Indication: COVID-19

REACTIONS (2)
  - Pneumomediastinum [Unknown]
  - Blood pressure decreased [Unknown]
